FAERS Safety Report 8328417-3 (Version None)
Quarter: 2012Q2

REPORT INFORMATION
  Report Type: 
  Country: None (occurrence: None)
  Receive Date: 20120502
  Receipt Date: 20100709
  Transmission Date: 20120825
  Serious: No
  Sender: FDA-Public Use
  Company Number: US-TEVA-2010003703

PATIENT
  Sex: Female
  Weight: 90.8 kg

DRUGS (4)
  1. VITAMIN TAB [Concomitant]
  2. AMLODIPINE BESYLATE AND BENAZEPRIL HCL [Concomitant]
     Dates: start: 20100101
  3. MINERAL TAB [Concomitant]
  4. NUVIGIL [Suspect]
     Indication: NARCOLEPSY
     Dosage: 150 MILLIGRAM;
     Route: 048
     Dates: start: 20100708

REACTIONS (2)
  - FATIGUE [None]
  - BALANCE DISORDER [None]
